FAERS Safety Report 16719417 (Version 1)
Quarter: 2019Q3

REPORT INFORMATION
  Report Type: Spontaneous
  Country: US (occurrence: US)
  Receive Date: 20190820
  Receipt Date: 20190820
  Transmission Date: 20191005
  Serious: Yes (Other)
  Sender: FDA-Public Use
  Company Number: US-AUROBINDO-AUR-APL-2019-054825

PATIENT

DRUGS (5)
  1. IBANDRONATE SODIUM. [Concomitant]
     Active Substance: IBANDRONATE SODIUM
     Indication: OSTEOPOROSIS
     Dosage: 150 MILLIGRAM, ONCE MONTHLY
     Route: 065
  2. CALCIUM CITRATE [Suspect]
     Active Substance: CALCIUM CITRATE
     Indication: HYPOCALCAEMIA
     Dosage: 1200 MILLIGRAM, ONCE A DAY
     Route: 065
  3. VITAMIN D [Suspect]
     Active Substance: VITAMIN D NOS
     Indication: HYPOCALCAEMIA
     Dosage: 50000 INTERNATIONAL UNIT, EVERY WEEK
     Route: 065
  4. PREMARIN [Concomitant]
     Active Substance: ESTROGENS, CONJUGATED
     Indication: HORMONE REPLACEMENT THERAPY
     Dosage: 1.25 MILLIGRAM, DAILY
     Route: 065
  5. OMEPRAZOLE. [Suspect]
     Active Substance: OMEPRAZOLE
     Indication: PRODUCT USED FOR UNKNOWN INDICATION
     Dosage: UNK
     Route: 065

REACTIONS (8)
  - Vitamin D deficiency [Unknown]
  - Gait disturbance [Unknown]
  - Fatigue [Unknown]
  - Malabsorption [Unknown]
  - Fall [Unknown]
  - Bone pain [Unknown]
  - Osteomalacia [Unknown]
  - Muscular weakness [Unknown]
